FAERS Safety Report 6529528-5 (Version None)
Quarter: 2010Q1

REPORT INFORMATION
  Report Type: 
  Country: None (occurrence: None)
  Receive Date: 20100104
  Receipt Date: 20091214
  Transmission Date: 20100710
  Serious: Yes (Death)
  Sender: FDA-Public Use
  Company Number: B0619784A

PATIENT

DRUGS (6)
  1. PACLITAXEL [Suspect]
     Indication: SMALL CELL LUNG CANCER STAGE UNSPECIFIED
     Dosage: 110 MG/M2/PER DAY / INTRAVENOUS
     Route: 042
  2. ZANTAC [Suspect]
     Dosage: 150 MG/ INTRAVENOUS
     Route: 042
  3. CHLORPHENIRAMINE MALEATE [Suspect]
     Dosage: 50 MG / INTRAVENOUS INFUS
  4. NIMUSTINE HYDROCHLORIDE INJECTION (NIMUSTINE HYDROCHLORIDE) [Suspect]
     Indication: SMALL CELL LUNG CANCER STAGE UNSPECIFIED
     Dosage: 50 MG/M2 / PER DAY / INTRAVENOUS INFUS
     Route: 042
  5. SEROTONIN INJECTION (SEROTONIN) [Suspect]
     Indication: PROPHYLAXIS OF NAUSEA AND VOMITING
     Dosage: INTRAVENOUS
     Route: 042
  6. DEXAMETHASONE [Suspect]
     Indication: PROPHYLAXIS OF NAUSEA AND VOMITING
     Dosage: INTRAVENOUS
     Route: 042

REACTIONS (1)
  - PNEUMONITIS [None]
